FAERS Safety Report 5956604-8 (Version None)
Quarter: 2008Q4

REPORT INFORMATION
  Report Type: 
  Country: None (occurrence: None)
  Receive Date: 20081118
  Receipt Date: 20081110
  Transmission Date: 20090506
  Serious: Yes (Other)
  Sender: FDA-Public Use
  Company Number: US-BAYER-200829113NA

PATIENT
  Age: 69 Year
  Sex: Female
  Weight: 80 kg

DRUGS (2)
  1. LEUKINE [Suspect]
     Indication: LYMPHOPLASMACYTOID LYMPHOMA/IMMUNOCYTOMA
     Dosage: TOTAL DAILY DOSE: 500 ?G
     Route: 058
     Dates: start: 20080616
  2. NEUPOGEN [Concomitant]
     Indication: NEUTROPENIA
     Dosage: TOTAL DAILY DOSE: 450 ?G

REACTIONS (9)
  - ABDOMINAL PAIN UPPER [None]
  - BLOOD PRESSURE DECREASED [None]
  - BONE PAIN [None]
  - DEHYDRATION [None]
  - DIARRHOEA [None]
  - INSOMNIA [None]
  - POLYMYOSITIS [None]
  - PYREXIA [None]
  - RASH [None]
